FAERS Safety Report 25682119 (Version 3)
Quarter: 2025Q4

REPORT INFORMATION
  Report Type: Spontaneous
  Country: TR (occurrence: TR)
  Receive Date: 20250814
  Receipt Date: 20251003
  Transmission Date: 20260117
  Serious: Yes (Death, Life-Threatening, Hospitalization)
  Sender: TEVA
  Company Number: TR-TEVA-VS-3360712

PATIENT
  Age: 58 Year
  Sex: Male

DRUGS (17)
  1. FILGRASTIM [Suspect]
     Active Substance: FILGRASTIM
     Indication: Neutropenia
     Route: 065
     Dates: start: 202410
  2. PREDNISOLONE [Suspect]
     Active Substance: PREDNISOLONE
     Indication: Immunosuppressant drug therapy
     Route: 065
     Dates: start: 202410
  3. PREDNISOLONE [Suspect]
     Active Substance: PREDNISOLONE
     Indication: Immunosuppressant drug therapy
     Dosage: RECEIVED PULSE PREDNISOLONE THERAPY
     Route: 065
     Dates: start: 202410
  4. FOLIC ACID [Suspect]
     Active Substance: FOLIC ACID
     Indication: Prophylaxis
     Route: 065
     Dates: start: 20240903
  5. CYCLOSPORINE [Suspect]
     Active Substance: CYCLOSPORINE
     Indication: SJS-TEN overlap
     Route: 065
     Dates: start: 202410
  6. CYTARABINE [Suspect]
     Active Substance: CYTARABINE
     Indication: Central nervous system lymphoma
     Dosage: PART OF MATRIX THERAPY, SECOND CYCLE
     Route: 065
     Dates: start: 20240930
  7. CYTARABINE [Suspect]
     Active Substance: CYTARABINE
     Indication: Central nervous system lymphoma
     Dosage: PART OF MATRIX THERAPY, FIRST CYCLE
     Route: 065
     Dates: start: 20240902
  8. IMMUNE GLOBULIN NOS [Suspect]
     Active Substance: IMMUNE GLOBULIN NOS
     Indication: Neutropenia
     Dosage: DOSAGE: 0.4 G/KG
     Route: 042
     Dates: start: 202410
  9. METHOTREXATE [Suspect]
     Active Substance: METHOTREXATE
     Indication: Central nervous system lymphoma
     Dosage: PART OF MATRIX THERAPY, FIRST CYCLE
     Route: 065
     Dates: start: 20240902
  10. METHOTREXATE [Suspect]
     Active Substance: METHOTREXATE
     Indication: Central nervous system lymphoma
     Dosage: PART OF MATRIX THERAPY, SECOND CYCLE
     Route: 037
     Dates: start: 20240930
  11. CEFOPERAZONE\SULBACTAM [Concomitant]
     Active Substance: CEFOPERAZONE\SULBACTAM
     Indication: Antibiotic therapy
     Route: 065
     Dates: start: 202410
  12. TACROLIMUS [Suspect]
     Active Substance: TACROLIMUS
     Indication: Immunosuppressant drug therapy
     Route: 065
     Dates: start: 202410
  13. MEROPENEM [Concomitant]
     Active Substance: MEROPENEM
     Indication: Antibiotic therapy
     Route: 065
     Dates: start: 202410
  14. DAPTOMYCIN [Concomitant]
     Active Substance: DAPTOMYCIN
     Indication: Antibiotic therapy
     Route: 065
     Dates: start: 202410
  15. RITUXIMAB [Suspect]
     Active Substance: RITUXIMAB
     Indication: Central nervous system lymphoma
     Dosage: PART OF MATRIX THERAPY, SECOND CYCLE
     Route: 065
     Dates: start: 20240930
  16. RITUXIMAB [Suspect]
     Active Substance: RITUXIMAB
     Indication: Central nervous system lymphoma
     Dosage: PART OF MATRIX THERAPY, FIRST CYCLE
     Route: 065
     Dates: start: 20240902
  17. MICAFUNGIN [Concomitant]
     Active Substance: MICAFUNGIN SODIUM
     Indication: Antifungal treatment
     Route: 065
     Dates: start: 202410

REACTIONS (6)
  - SJS-TEN overlap [Fatal]
  - Drug ineffective [Fatal]
  - Multiple organ dysfunction syndrome [Fatal]
  - Neutropenia [Unknown]
  - Nephropathy toxic [Unknown]
  - Acute kidney injury [Unknown]

NARRATIVE: CASE EVENT DATE: 20241001
